FAERS Safety Report 21290863 (Version 2)
Quarter: 2022Q3

REPORT INFORMATION
  Report Type: Spontaneous
  Country: RU (occurrence: RU)
  Receive Date: 20220903
  Receipt Date: 20220915
  Transmission Date: 20221027
  Serious: Yes (Hospitalization, Other)
  Sender: FDA-Public Use
  Company Number: RU-NOVARTISPH-NVSC2022RU197695

PATIENT
  Sex: Female

DRUGS (1)
  1. BROLUCIZUMAB [Suspect]
     Active Substance: BROLUCIZUMAB
     Indication: Neovascular age-related macular degeneration
     Dosage: 6 MG (RIGHT EYE)
     Route: 031
     Dates: start: 20220713

REACTIONS (8)
  - Uveitis [Not Recovered/Not Resolved]
  - Keratic precipitates [Recovering/Resolving]
  - Vitreal cells [Recovering/Resolving]
  - Blood pressure increased [Unknown]
  - Body temperature increased [Unknown]
  - Visual impairment [Recovering/Resolving]
  - Vision blurred [Unknown]
  - Abnormal sensation in eye [Unknown]

NARRATIVE: CASE EVENT DATE: 20220807
